FAERS Safety Report 7497266-0 (Version None)
Quarter: 2011Q2

REPORT INFORMATION
  Report Type: 
  Country: None (occurrence: None)
  Receive Date: 20110523
  Receipt Date: 20110510
  Transmission Date: 20111010
  Serious: Yes (Hospitalization, Other)
  Sender: FDA-Public Use
  Company Number: PHHY2011JP25988

PATIENT
  Sex: Female
  Weight: 52 kg

DRUGS (15)
  1. PLETAL [Concomitant]
     Dosage: 200 MG, UNK
     Route: 048
     Dates: start: 20090823
  2. METFORMIN HCL [Concomitant]
     Dosage: 750 MG, UNK
     Route: 048
     Dates: start: 20071207, end: 20080129
  3. LOSARTAN POTASSIUM [Concomitant]
     Indication: HYPERTENSION
     Dosage: 50 MG, UNK
     Route: 048
     Dates: start: 20071207, end: 20080214
  4. FLUITRAN [Concomitant]
     Indication: HYPERTENSION
     Dosage: 4 MG, UNK
     Route: 048
     Dates: start: 20090826
  5. VALSARTAN [Suspect]
     Dosage: 80 MG, BID
     Route: 048
     Dates: start: 20090825
  6. NOVORAPID [Concomitant]
     Dosage: 19 IU, UNK
     Route: 058
  7. ADALAT CC [Concomitant]
     Indication: HYPERTENSION
     Dosage: 20 MG, UNK
     Route: 048
     Dates: start: 20071207
  8. ADALAT CC [Concomitant]
     Dosage: 40 MG, UNK
     Route: 048
  9. LEVOTHYROXINE SODIUM [Concomitant]
     Dosage: 100 UG, UNK
     Route: 048
     Dates: start: 20071207
  10. NOVORAPID [Concomitant]
     Dosage: 16 IU, UNK
     Route: 058
  11. XANBON [Concomitant]
     Dosage: 80 MG, DAILY
  12. NOVORAPID [Concomitant]
     Dosage: 13 IU, UNK
     Route: 058
     Dates: start: 20071207
  13. CRESTOR [Concomitant]
     Dosage: 1.25 MG, UNK
     Route: 048
     Dates: start: 20071207
  14. BASEN [Concomitant]
     Dosage: 0.9 MG, UNK
     Route: 048
     Dates: start: 20071207
  15. VALSARTAN [Suspect]
     Dosage: 80 MG, UNK
     Route: 048
     Dates: start: 20080215, end: 20090824

REACTIONS (9)
  - CONDITION AGGRAVATED [None]
  - BLOOD GLUCOSE DECREASED [None]
  - DIABETIC NEPHROPATHY [None]
  - DIZZINESS [None]
  - CEREBRAL INFARCTION [None]
  - BLOOD UREA INCREASED [None]
  - BLOOD CREATININE INCREASED [None]
  - VOMITING [None]
  - RENAL IMPAIRMENT [None]
